FAERS Safety Report 9110851 (Version 1)
Quarter: 2013Q1

REPORT INFORMATION
  Report Type: Spontaneous
  Country: US (occurrence: US)
  Receive Date: 20130219
  Receipt Date: 20130219
  Transmission Date: 20140127
  Serious: No
  Sender: FDA-Public Use
  Company Number: US-BRISTOL-MYERS SQUIBB COMPANY-16326746

PATIENT
  Age: 66 Year
  Sex: Female

DRUGS (1)
  1. ORENCIA FOR INJ [Suspect]
     Indication: RHEUMATOID ARTHRITIS
     Dosage: SECOND INF ON 23DEC2011
     Route: 042
     Dates: start: 20111209, end: 2011

REACTIONS (6)
  - Stomatitis [Unknown]
  - Headache [Unknown]
  - Oropharyngeal pain [Unknown]
  - Local swelling [Unknown]
  - Contusion [Unknown]
  - Malaise [Unknown]
